FAERS Safety Report 9144728 (Version 1)
Quarter: 2013Q1

REPORT INFORMATION
  Report Type: Spontaneous
  Country: US (occurrence: US)
  Receive Date: 20130306
  Receipt Date: 20130306
  Transmission Date: 20140127
  Serious: No
  Sender: FDA-Public Use
  Company Number: US-009507513-1303USA002646

PATIENT
  Age: 23 Year
  Sex: Female

DRUGS (2)
  1. AFRIN [Suspect]
     Indication: RESPIRATORY TRACT CONGESTION
     Dosage: UNK, UNKNOWN
     Route: 045
  2. AFRIN [Suspect]
     Indication: HEADACHE

REACTIONS (2)
  - Oropharyngeal pain [Unknown]
  - Drug effect decreased [Unknown]
